FAERS Safety Report 24438702 (Version 1)
Quarter: 2024Q4

REPORT INFORMATION
  Report Type: Report from Study
  Country: JP (occurrence: JP)
  Receive Date: 20241015
  Receipt Date: 20241015
  Transmission Date: 20250115
  Serious: Yes (Death)
  Sender: PFIZER
  Company Number: JP-PFIZER INC-202400276215

PATIENT

DRUGS (3)
  1. CISPLATIN [Suspect]
     Active Substance: CISPLATIN
     Indication: Small cell lung cancer limited stage
     Dosage: 60-80 MG/M2 ON DAY 1; EVERY 3-4 WEEKS
     Route: 042
  2. CARBOPLATIN [Suspect]
     Active Substance: CARBOPLATIN
     Indication: Small cell lung cancer limited stage
     Dosage: (AREA UNDER THE CURVE [AUC] 3-5) ON DAY 1; EVERY 3-4 WEEKS
     Route: 042
  3. ETOPOSIDE [Suspect]
     Active Substance: ETOPOSIDE
     Indication: Small cell lung cancer limited stage
     Dosage: 60-100 MG/M2 ON DAYS 1-3; EVERY 3-4 WEEKS
     Route: 042

REACTIONS (1)
  - Acute coronary syndrome [Fatal]
